FAERS Safety Report 8215095-7 (Version None)
Quarter: 2012Q1

REPORT INFORMATION
  Report Type: 
  Country: None (occurrence: None)
  Receive Date: 20120316
  Receipt Date: 20120306
  Transmission Date: 20120608
  Serious: Yes (Hospitalization, Other)
  Sender: FDA-Public Use
  Company Number: PHHY2012CN019412

PATIENT
  Age: 76 Year
  Sex: Male

DRUGS (1)
  1. ALLOPURINOL [Suspect]
     Dosage: 0.1 G, BID

REACTIONS (10)
  - BLOOD GLUCOSE INCREASED [None]
  - PYREXIA [None]
  - ERYTHEMA [None]
  - BLISTER [None]
  - HEPATITIS [None]
  - ACQUIRED EPIDERMOLYSIS BULLOSA [None]
  - RASH MACULO-PAPULAR [None]
  - METABOLIC ACIDOSIS [None]
  - HAEMOGLOBIN DECREASED [None]
  - MOUTH ULCERATION [None]
